FAERS Safety Report 17973966 (Version 3)
Quarter: 2020Q3

REPORT INFORMATION
  Report Type: Spontaneous
  Country: DZ (occurrence: DZ)
  Receive Date: 20200702
  Receipt Date: 20200828
  Transmission Date: 20201103
  Serious: Yes (Death, Life-Threatening, Hospitalization, Other)
  Sender: FDA-Public Use
  Company Number: DZ-AMGEN-DZASP2020105771

PATIENT
  Age: 74 Year
  Sex: Male

DRUGS (1)
  1. NEUPOGEN [Suspect]
     Active Substance: FILGRASTIM
     Indication: PRODUCT USED FOR UNKNOWN INDICATION
     Dosage: UNK
     Route: 065

REACTIONS (5)
  - Infection [Unknown]
  - Disease complication [Fatal]
  - Mobility decreased [Unknown]
  - Back pain [Recovered/Resolved]
  - Coma [Unknown]
